FAERS Safety Report 19766771 (Version 1)
Quarter: 2021Q3

REPORT INFORMATION
  Report Type: Spontaneous
  Country: US (occurrence: US)
  Receive Date: 20210831
  Receipt Date: 20210831
  Transmission Date: 20211014
  Serious: No
  Sender: FDA-Public Use
  Company Number: US-TARO-2021TAR00074

PATIENT
  Sex: Male

DRUGS (1)
  1. CLOBETASOL PROPIONATE OINTMENT USP 0.05% [Suspect]
     Active Substance: CLOBETASOL PROPIONATE
     Indication: PRODUCT USED FOR UNKNOWN INDICATION
     Dosage: CONTAINER SIZE: 60 GRAMS, STORAGE CONDITIONS: ROOM TEMPERATURE
     Route: 065

REACTIONS (1)
  - Therapeutic product effect incomplete [Unknown]
